FAERS Safety Report 8595121-6 (Version None)
Quarter: 2012Q3

REPORT INFORMATION
  Report Type: 
  Country: None (occurrence: None)
  Receive Date: 20120807
  Receipt Date: 20120807
  Transmission Date: 20120928
  Serious: Yes (Hospitalization)
  Sender: FDA-Public Use
  Company Number: None

PATIENT
  Age: 60 Year
  Sex: Male
  Weight: 107 kg

DRUGS (19)
  1. POTASSIUM PHOSPHATES [Concomitant]
  2. MELPHALAN HYDROCHLORIDE [Concomitant]
  3. GABAPENTIN [Concomitant]
  4. CRESTOR [Concomitant]
  5. ASPIRIN [Concomitant]
  6. ZEVALIN [Suspect]
     Indication: MULTIPLE MYELOMA
     Dosage: 30.4 MCI/X 1/IV
     Route: 042
     Dates: start: 20120606
  7. DEXAMETHASONE [Concomitant]
  8. METOPROLOL TARTRATE [Concomitant]
  9. ONDANSETRON [Concomitant]
  10. ZEVALIN [Suspect]
     Indication: MULTIPLE MYELOMA
     Dosage: 5.493 MICOCURIES/X 1/IV
     Route: 042
     Dates: start: 20120530
  11. ACID PRESTUDY [Concomitant]
  12. K-PHOS PREMIX [Concomitant]
  13. ISOSORBIDE [Concomitant]
  14. LEVOTHYROXINE SODIUM [Concomitant]
  15. MAG SULFUR [Concomitant]
  16. NIFEDIPINE [Concomitant]
  17. LASIX [Concomitant]
  18. PROTONIX [Concomitant]
  19. NAHCO3 [Concomitant]

REACTIONS (1)
  - MYOCLONUS [None]
